FAERS Safety Report 6509764-4 (Version None)
Quarter: 2009Q4

REPORT INFORMATION
  Report Type: 
  Country: None (occurrence: None)
  Receive Date: 20091221
  Receipt Date: 20091221
  Transmission Date: 20100525
  Serious: Yes (Hospitalization)
  Sender: FDA-Public Use
  Company Number: None

PATIENT
  Age: 76 Year
  Sex: Female

DRUGS (2)
  1. GEMCITABINE [Suspect]
     Indication: PANCREATIC CARCINOMA METASTATIC
     Dosage: 2700MG
     Dates: start: 20090824, end: 20091103
  2. ALIMTA [Suspect]
     Indication: PANCREATIC CARCINOMA METASTATIC
     Dosage: 900MG
     Dates: start: 20090817, end: 20091103

REACTIONS (4)
  - ACUTE PRERENAL FAILURE [None]
  - HYPOVOLAEMIA [None]
  - OEDEMA PERIPHERAL [None]
  - PANCYTOPENIA [None]
